FAERS Safety Report 24040762 (Version 1)
Quarter: 2024Q3

REPORT INFORMATION
  Report Type: Spontaneous
  Country: US (occurrence: None)
  Receive Date: 20240701
  Receipt Date: 20240701
  Transmission Date: 20241016
  Serious: Yes (Other)
  Sender: Public
  Company Number: None

PATIENT
  Sex: Female

DRUGS (1)
  1. RINVOQ [Suspect]
     Active Substance: UPADACITINIB
     Indication: Rheumatoid arthritis
     Dosage: FREQ: TAKE 1 TABLET (15 MG) BY MOUTH IN THE MORNING. DO NOT CRUSH, CHEW OR SPLIT. SWALLOW WHOLE.
     Route: 048
     Dates: start: 20220524

REACTIONS (2)
  - Surgery [None]
  - Intentional dose omission [None]
